FAERS Safety Report 6424766-4 (Version None)
Quarter: 2009Q4

REPORT INFORMATION
  Report Type: 
  Country: None (occurrence: None)
  Receive Date: 20091030
  Receipt Date: 20091030
  Transmission Date: 20100525
  Serious: Yes (Hospitalization)
  Sender: FDA-Public Use
  Company Number: None

PATIENT
  Age: 87 Year
  Sex: Male

DRUGS (1)
  1. PROPRANOLOL [Suspect]
     Indication: ESSENTIAL TREMOR
     Dosage: 160 MG BID PO
     Route: 048
     Dates: start: 20000801, end: 20081205

REACTIONS (1)
  - BRADYCARDIA [None]
